FAERS Safety Report 8161003-7 (Version None)
Quarter: 2012Q1

REPORT INFORMATION
  Report Type: 
  Country: None (occurrence: None)
  Receive Date: 20120224
  Receipt Date: 20120215
  Transmission Date: 20120608
  Serious: Yes (Other)
  Sender: FDA-Public Use
  Company Number: US-BRISTOL-MYERS SQUIBB COMPANY-16400913

PATIENT
  Age: 76 Year
  Sex: Female
  Weight: 82 kg

DRUGS (8)
  1. VITAMIN B6 [Concomitant]
  2. ALLOPURINOL [Concomitant]
     Indication: GOUT
  3. CALCIUM [Concomitant]
  4. AVALIDE [Suspect]
     Indication: HYPERTENSION
     Dates: start: 20090101
  5. ASPIRIN [Concomitant]
  6. VITAMIN B-12 [Concomitant]
  7. VITAMIN D [Concomitant]
     Dosage: DF=2000 UNITS NOT SPECIFIED
  8. FOLIC ACID [Concomitant]

REACTIONS (4)
  - RENAL PAIN [None]
  - URINARY RETENTION [None]
  - BLADDER PAIN [None]
  - BACK PAIN [None]
